FAERS Safety Report 7015479-9 (Version None)
Quarter: 2010Q3

REPORT INFORMATION
  Report Type: 
  Country: None (occurrence: None)
  Receive Date: 20100927
  Receipt Date: 20100916
  Transmission Date: 20110219
  Serious: Yes (Hospitalization)
  Sender: FDA-Public Use
  Company Number: US-JNJFOC-20100905365

PATIENT
  Sex: Male
  Weight: 28.7 kg

DRUGS (5)
  1. INFLIXIMAB, RECOMBINANT [Suspect]
     Indication: CROHN'S DISEASE
     Route: 042
  2. INFLIXIMAB, RECOMBINANT [Suspect]
     Route: 042
  3. HUMIRA [Suspect]
     Indication: CROHN'S DISEASE
  4. CIPRO [Concomitant]
     Indication: INFLAMMATORY BOWEL DISEASE
  5. PREDNISONE [Concomitant]

REACTIONS (1)
  - CROHN'S DISEASE [None]
